FAERS Safety Report 8058582 (Version 3)
Quarter: 2013Q3

REPORT INFORMATION
  Report Type: Report from Study
  Country: US (occurrence: US)
  Receive Date: 20110728
  Receipt Date: 20130925
  Transmission Date: 20140515
  Serious: Yes (Death, Other)
  Sender: FDA-Public Use
  Company Number: US-CELGENEUS-163-21880-10070683

PATIENT
  Sex: 0

DRUGS (8)
  1. REVLIMID [Suspect]
     Indication: PLASMA CELL MYELOMA
     Dosage: 10-25MG
     Route: 048
  2. REVLIMID [Suspect]
     Dosage: 25 MILLIGRAM
     Route: 048
  3. DEXAMETHASONE [Suspect]
     Indication: PLASMA CELL MYELOMA
     Dosage: 40 MILLIGRAM
     Route: 048
  4. DEXAMETHASONE [Suspect]
     Dosage: 40 MILLIGRAM
     Route: 048
  5. CARFILZOMIB [Suspect]
     Indication: PLASMA CELL MYELOMA
     Dosage: 15-27MG/M2
     Route: 041
  6. CARFILZOMIB [Suspect]
     Dosage: 15-27MG/M2
     Route: 041
  7. CARFILZOMIB [Suspect]
     Dosage: 20/27 MG/M2
     Route: 041
  8. DIURETIC [Concomitant]
     Indication: PRODUCT USED FOR UNKNOWN INDICATION
     Route: 065

REACTIONS (63)
  - Hypoxia [Unknown]
  - Sinus bradycardia [Unknown]
  - Hyperglycaemia [Unknown]
  - Urinary tract infection [Unknown]
  - Hyponatraemia [Unknown]
  - Gastrointestinal haemorrhage [Unknown]
  - Upper respiratory tract infection [Unknown]
  - Febrile neutropenia [Unknown]
  - Diarrhoea [Unknown]
  - Rash [Unknown]
  - Face oedema [Unknown]
  - Pneumonia [Unknown]
  - Hypophosphataemia [Unknown]
  - Lymphopenia [Unknown]
  - Fatigue [Unknown]
  - Myocardial infarction [Unknown]
  - Cerebrovascular accident [Unknown]
  - Pancytopenia [Unknown]
  - Angina pectoris [Unknown]
  - Renal failure acute [Unknown]
  - Oedema peripheral [Unknown]
  - Dyspnoea [Unknown]
  - Muscle spasms [Unknown]
  - Back pain [Unknown]
  - Hypokalaemia [Unknown]
  - Musculoskeletal pain [Unknown]
  - Vision blurred [Unknown]
  - Hypertension [Unknown]
  - Coronary artery disease [Unknown]
  - Deep vein thrombosis [Unknown]
  - Large intestinal stenosis [Fatal]
  - Plasma cell myeloma [Unknown]
  - Acute myocardial infarction [Unknown]
  - Haemoglobin decreased [Unknown]
  - Alanine aminotransferase increased [Unknown]
  - Tachycardia [Unknown]
  - Sick sinus syndrome [Unknown]
  - Cardiac arrest [Fatal]
  - Thrombocytopenia [Unknown]
  - Leukopenia [Unknown]
  - Neutropenia [Unknown]
  - Neuropathy peripheral [Unknown]
  - Anaemia [Unknown]
  - Pyrexia [Unknown]
  - Nausea [Unknown]
  - Dizziness [Unknown]
  - Peripheral sensory neuropathy [Unknown]
  - Asthenia [Unknown]
  - Peripheral motor neuropathy [Unknown]
  - Influenza [Unknown]
  - Hypercalcaemia [Unknown]
  - Constipation [Unknown]
  - Pain in extremity [Unknown]
  - Insomnia [Unknown]
  - Arthralgia [Unknown]
  - Hypomagnesaemia [Unknown]
  - Paraesthesia [Unknown]
  - Headache [Unknown]
  - Cough [Unknown]
  - Epistaxis [Unknown]
  - Dehydration [Unknown]
  - Blood creatinine increased [Unknown]
  - Abdominal pain [Unknown]
